FAERS Safety Report 7967046-8 (Version None)
Quarter: 2011Q4

REPORT INFORMATION
  Report Type: 
  Country: None (occurrence: None)
  Receive Date: 20111209
  Receipt Date: 20111205
  Transmission Date: 20120403
  Serious: Yes (Death, Other)
  Sender: FDA-Public Use
  Company Number: US-PFIZER INC-2011151582

PATIENT
  Sex: Female

DRUGS (1)
  1. CHANTIX [Suspect]
     Indication: SMOKING CESSATION THERAPY
     Dosage: STARTING PACK
     Route: 048
     Dates: start: 20090901, end: 20100122

REACTIONS (5)
  - FATIGUE [None]
  - WEIGHT DECREASED [None]
  - INSOMNIA [None]
  - COMPLETED SUICIDE [None]
  - DEPRESSION [None]
